FAERS Safety Report 4524264-9 (Version None)
Quarter: 2004Q4

REPORT INFORMATION
  Report Type: 
  Country: None (occurrence: None)
  Receive Date: 20041119
  Receipt Date: 20040921
  Transmission Date: 20050328
  Serious: No
  Sender: FDA-Public Use
  Company Number: 207647

PATIENT
  Age: 43 Year
  Sex: Female
  Weight: 81.6 kg

DRUGS (2)
  1. RAPTIVA [Suspect]
     Indication: PSORIASIS
     Dosage: 0.8, 1/WEEK, SUBCUTANEOUS
     Route: 058
     Dates: start: 20031211
  2. TOPICAL STEROIDS (UNKNOWN INGREDIENTS) (TOPICAL STEROOID NOS) [Concomitant]

REACTIONS (2)
  - RASH PAPULAR [None]
  - SKIN NODULE [None]
